APPROVED DRUG PRODUCT: MINOCYCLINE HYDROCHLORIDE
Active Ingredient: MINOCYCLINE HYDROCHLORIDE
Strength: EQ 65MG BASE
Dosage Form/Route: TABLET, EXTENDED RELEASE;ORAL
Application: A201467 | Product #001
Applicant: RISING PHARMA HOLDINGS INC
Approved: Jul 30, 2019 | RLD: No | RS: No | Type: DISCN